FAERS Safety Report 5925598-3 (Version None)
Quarter: 2008Q4

REPORT INFORMATION
  Report Type: 
  Country: None (occurrence: None)
  Receive Date: 20081021
  Receipt Date: 20081014
  Transmission Date: 20090506
  Serious: Yes (Hospitalization)
  Sender: FDA-Public Use
  Company Number: A0752679A

PATIENT
  Age: 56 Year
  Sex: Male

DRUGS (6)
  1. COREG CR [Suspect]
     Dosage: 20MG UNKNOWN
     Route: 048
     Dates: start: 20080801
  2. FOOD [Suspect]
  3. TEKTURNA [Suspect]
     Dosage: 300MG UNKNOWN
     Route: 048
     Dates: start: 20080801, end: 20080901
  4. DIOVAN [Concomitant]
     Dosage: 320MG AT NIGHT
     Route: 048
  5. FISH OIL [Concomitant]
  6. HYDROCHLOROTHIAZIDE [Concomitant]
     Dosage: 25MG UNKNOWN
     Route: 048

REACTIONS (7)
  - ABDOMINAL DISTENSION [None]
  - ABDOMINAL PAIN [None]
  - BLOOD PRESSURE INCREASED [None]
  - DRUG INEFFECTIVE [None]
  - DRUG INTERACTION [None]
  - HEADACHE [None]
  - MALAISE [None]
